FAERS Safety Report 16475728 (Version 3)
Quarter: 2020Q3

REPORT INFORMATION
  Report Type: Report from Study
  Country: CA (occurrence: CA)
  Receive Date: 20190625
  Receipt Date: 20200813
  Transmission Date: 20201102
  Serious: Yes (Life-Threatening, Other)
  Sender: FDA-Public Use
  Company Number: PHHY2019CA145855

PATIENT
  Age: 58 Year
  Sex: Male

DRUGS (2)
  1. ERELZI [Suspect]
     Active Substance: ETANERCEPT-SZZS
     Dosage: 50 MG, QW
     Route: 058
     Dates: start: 20190617
  2. ERELZI [Suspect]
     Active Substance: ETANERCEPT-SZZS
     Indication: RHEUMATOID ARTHRITIS
     Dosage: 50 MG, QW
     Route: 058
     Dates: start: 20190606

REACTIONS (8)
  - Productive cough [Recovering/Resolving]
  - Suicidal ideation [Unknown]
  - Pneumonitis [Unknown]
  - Pneumonia [Recovered/Resolved]
  - Dyspnoea [Unknown]
  - Bronchitis [Unknown]
  - Inappropriate schedule of product administration [Unknown]
  - Chronic obstructive pulmonary disease [Unknown]

NARRATIVE: CASE EVENT DATE: 201906
